FAERS Safety Report 25763692 (Version 1)
Quarter: 2025Q3

REPORT INFORMATION
  Report Type: Spontaneous
  Country: US (occurrence: US)
  Receive Date: 20250905
  Receipt Date: 20250905
  Transmission Date: 20251021
  Serious: No
  Sender: DOMPE FARMACEUTICI
  Company Number: US-FARMAPROD-202410-3652

PATIENT
  Sex: Female

DRUGS (24)
  1. OXERVATE [Suspect]
     Active Substance: CENEGERMIN-BKBJ
     Indication: Neurotrophic keratopathy
     Route: 047
     Dates: start: 20241008
  2. OXERVATE [Suspect]
     Active Substance: CENEGERMIN-BKBJ
  3. OXERVATE [Suspect]
     Active Substance: CENEGERMIN-BKBJ
  4. HERBALS\WITHANIA SOMNIFERA ROOT [Concomitant]
     Active Substance: HERBALS\WITHANIA SOMNIFERA ROOT
  5. VITAMIN D3 [Concomitant]
     Active Substance: CHOLECALCIFEROL
  6. PROBIOTICS NOS [Concomitant]
     Active Substance: PROBIOTICS NOS
  7. B12 ACTIVE [Concomitant]
  8. VALERIAN [Concomitant]
     Active Substance: VALERIAN
  9. TART CHERRY [Concomitant]
  10. ELETRIPTAN HYDROBROMIDE [Concomitant]
     Active Substance: ELETRIPTAN HYDROBROMIDE
  11. FISH OIL [Concomitant]
     Active Substance: FISH OIL
  12. SENNA-S [Concomitant]
     Active Substance: DOCUSATE SODIUM\SENNOSIDES
  13. LEVOTHYROXINE SODIUM [Concomitant]
     Active Substance: LEVOTHYROXINE SODIUM
  14. VEVYE [Concomitant]
     Active Substance: CYCLOSPORINE
  15. XIIDRA [Concomitant]
     Active Substance: LIFITEGRAST
  16. TUMS [Concomitant]
     Active Substance: CALCIUM CARBONATE
  17. GAS-X [Concomitant]
     Active Substance: DIMETHICONE
  18. PEPCID COMPLETE [Concomitant]
     Active Substance: CALCIUM CARBONATE\FAMOTIDINE\MAGNESIUM HYDROXIDE
  19. IBUPROFEN [Concomitant]
     Active Substance: IBUPROFEN
  20. FEXOFENADINE HYDROCHLORIDE [Concomitant]
     Active Substance: FEXOFENADINE HYDROCHLORIDE
  21. LORAZEPAM [Concomitant]
     Active Substance: LORAZEPAM
  22. DOXYCYCLINE HYCLATE [Concomitant]
     Active Substance: DOXYCYCLINE HYCLATE
  23. LACTASE [Concomitant]
     Active Substance: LACTASE
  24. TYLENOL [Concomitant]
     Active Substance: ACETAMINOPHEN

REACTIONS (7)
  - Product dose omission issue [Unknown]
  - Headache [Not Recovered/Not Resolved]
  - Ocular hyperaemia [Unknown]
  - Dry eye [Unknown]
  - Eye pain [Unknown]
  - Nervousness [Unknown]
  - Therapy interrupted [Unknown]
